FAERS Safety Report 7590539-2 (Version None)
Quarter: 2011Q3

REPORT INFORMATION
  Report Type: 
  Country: None (occurrence: None)
  Receive Date: 20110705
  Receipt Date: 20110628
  Transmission Date: 20111222
  Serious: Yes (Life-Threatening, Other)
  Sender: FDA-Public Use
  Company Number: AU-ASTRAZENECA-2011SE38949

PATIENT

DRUGS (2)
  1. NEXIUM [Suspect]
     Route: 042
  2. NEXIUM [Suspect]
     Route: 042

REACTIONS (2)
  - WRONG DRUG ADMINISTERED [None]
  - CARDIAC ARREST [None]
